FAERS Safety Report 8864441 (Version 1)
Quarter: 2012Q4

REPORT INFORMATION
  Report Type: 
  Country: US (occurrence: US)
  Receive Date: 20121024
  Receipt Date: 20121024
  Transmission Date: 20130627
  Serious: No
  Sender: FDA-Public Use
  Company Number: US-AMGEN-USASP2011067445

PATIENT
  Age: 63 Year
  Sex: Female
  Weight: 64.85 kg

DRUGS (8)
  1. ENBREL [Suspect]
     Indication: PRODUCT USED FOR UNKNOWN INDICATION
     Dosage: 50 mg, qwk
  2. ZOLOFT [Concomitant]
     Dosage: 25 mg, UNK
  3. ACCURETIC [Concomitant]
     Dosage: UNK
  4. OMEPRAZOLE [Concomitant]
     Dosage: 20 mg, UNK
  5. METOPROLOL [Concomitant]
     Dosage: 25 mg, UNK
  6. CYANOCOBALAMIN [Concomitant]
     Dosage: UNK
  7. VITAMIN B-12 [Concomitant]
     Dosage: UNK
  8. BABY ASPIRIN [Concomitant]
     Dosage: 81 mg, UNK

REACTIONS (2)
  - Pruritus [Unknown]
  - Psoriasis [Unknown]
